FAERS Safety Report 16041995 (Version 1)
Quarter: 2019Q1

REPORT INFORMATION
  Report Type: Spontaneous
  Country: US (occurrence: US)
  Receive Date: 20190306
  Receipt Date: 20190306
  Transmission Date: 20190418
  Serious: No
  Sender: FDA-Public Use
  Company Number: US-AKORN PHARMACEUTICALS-2018AKN00727

PATIENT
  Sex: Female
  Weight: 48.07 kg

DRUGS (2)
  1. MYORISAN [Suspect]
     Active Substance: ISOTRETINOIN
     Dosage: 20 MG, 2X/DAY
     Route: 048
     Dates: start: 201804, end: 2018
  2. MYORISAN [Suspect]
     Active Substance: ISOTRETINOIN
     Indication: ACNE CYSTIC
     Dosage: 20 MG, 1X/DAY
     Route: 048
     Dates: start: 201804, end: 2018

REACTIONS (6)
  - Influenza [Unknown]
  - Abdominal pain [Unknown]
  - Off label use [Recovered/Resolved]
  - Headache [Unknown]
  - Treatment noncompliance [Unknown]
  - Malaise [Unknown]

NARRATIVE: CASE EVENT DATE: 2018
